FAERS Safety Report 6191792-2 (Version None)
Quarter: 2009Q2

REPORT INFORMATION
  Report Type: 
  Country: None (occurrence: None)
  Receive Date: 20090515
  Receipt Date: 20090505
  Transmission Date: 20091009
  Serious: Yes (Hospitalization)
  Sender: FDA-Public Use
  Company Number: PHHO2009US05188

PATIENT
  Weight: 80 kg

DRUGS (44)
  1. BLINDED NO TREATMENT RECEIVED NOMED [Suspect]
     Indication: CARCINOID TUMOUR
     Dosage: DOUBLE BLIND
     Route: 048
     Dates: start: 20071004, end: 20071210
  2. BLINDED PLACEBO COMP-PLA+ [Suspect]
     Indication: CARCINOID TUMOUR
     Dosage: DOUBLE BLIND
     Route: 048
     Dates: start: 20071004, end: 20071210
  3. BLINDED RAD 666 RAD+TAB [Suspect]
     Indication: CARCINOID TUMOUR
     Dosage: DOUBLE BLIND
     Route: 048
     Dates: start: 20071004, end: 20071210
  4. RAD001C [Suspect]
     Indication: CARCINOID TUMOUR
     Dosage: 10 MG/ DAY
     Route: 048
     Dates: start: 20071211, end: 20090118
  5. RAD001C [Suspect]
     Dosage: 10 MG/ DAY
     Route: 048
     Dates: start: 20090129
  6. SANDOSTATIN LAR [Concomitant]
     Indication: CARCINOID TUMOUR
  7. TYLENOL [Concomitant]
  8. NORVASC [Concomitant]
  9. PANGESTYME UL [Concomitant]
  10. ASCORBIC ACID [Concomitant]
  11. ASPIRIN [Concomitant]
  12. OSCAL [Concomitant]
  13. FERROUS SULFATE TAB [Concomitant]
  14. LOVAZA [Concomitant]
  15. PROZAC [Concomitant]
  16. SARAFEM [Concomitant]
  17. HYDRODIURIL [Concomitant]
  18. INSULIN ASPART [Concomitant]
  19. LANTUS [Concomitant]
  20. CORGARD [Concomitant]
  21. OCTREOTIDE ACETATE [Concomitant]
  22. BENICAR [Concomitant]
  23. ENDOCET [Concomitant]
  24. PERCOCET [Concomitant]
  25. ROXICET [Concomitant]
  26. FIBERCON (POLYCARBOPHIL) [Concomitant]
  27. ACIPHEX [Concomitant]
  28. ZOCOR [Concomitant]
  29. ALDACTONE [Concomitant]
  30. VITAMIN D [Concomitant]
  31. MULTI-VITAMINS [Concomitant]
  32. AMLODIPINE [Concomitant]
  33. PANCREATIC ENZYMES [Concomitant]
  34. ASPIRIN [Concomitant]
  35. FLUOXETINE HCL [Concomitant]
  36. HYDROCHLOROTHIAZIDE [Concomitant]
  37. INSULIN GLARGINE [Concomitant]
  38. NADOLOL [Concomitant]
  39. OLMESARTAN [Concomitant]
  40. RABEPRAZOLE SODIUM [Concomitant]
  41. SIMVASTATIN [Concomitant]
  42. SPIRONOLACTONE [Concomitant]
  43. AMYLASE W/LIPASE/PROTEASE [Concomitant]
  44. CALCIUM WITH VITAMIN D [Concomitant]

REACTIONS (15)
  - ABDOMINAL PAIN [None]
  - ALANINE AMINOTRANSFERASE INCREASED [None]
  - ANAEMIA [None]
  - ASPARTATE AMINOTRANSFERASE INCREASED [None]
  - BRONCHITIS [None]
  - GASTRIC ANTRAL VASCULAR ECTASIA [None]
  - GASTRIC ULCER [None]
  - GASTROINTESTINAL HAEMORRHAGE [None]
  - HAEMATOCHEZIA [None]
  - HIGH FREQUENCY ABLATION [None]
  - HYPERGLYCAEMIA [None]
  - MELAENA [None]
  - PNEUMONIA [None]
  - THROMBOSIS [None]
  - WHEEZING [None]
